FAERS Safety Report 4724339-5 (Version None)
Quarter: 2005Q3

REPORT INFORMATION
  Report Type: 
  Country: None (occurrence: None)
  Receive Date: 20050726
  Receipt Date: 20050718
  Transmission Date: 20060218
  Serious: Yes (Other)
  Sender: FDA-Public Use
  Company Number: 2005PK01284

PATIENT
  Age: 23918 Day

DRUGS (8)
  1. SEROQUEL [Suspect]
     Route: 048
     Dates: start: 20050311, end: 20050418
  2. SEROQUEL [Suspect]
     Route: 048
     Dates: start: 20050419, end: 20050502
  3. SEROQUEL [Suspect]
     Route: 048
     Dates: start: 20050503, end: 20050524
  4. DOXEPIN HCL [Concomitant]
  5. MIRTAZAPINE [Concomitant]
  6. ZOLPIDEM [Concomitant]
  7. LORZAAR PLUS [Concomitant]
  8. ASS 100 [Concomitant]

REACTIONS (1)
  - LEUKOPENIA [None]
